FAERS Safety Report 14715225 (Version 15)
Quarter: 2020Q2

REPORT INFORMATION
  Report Type: Spontaneous
  Country: US (occurrence: US)
  Receive Date: 20180404
  Receipt Date: 20200409
  Transmission Date: 20200713
  Serious: Yes (Hospitalization, Other)
  Sender: FDA-Public Use
  Company Number: US-PFIZER INC-2018135472

PATIENT
  Age: 42 Year
  Sex: Male
  Weight: 78 kg

DRUGS (9)
  1. LYRICA [Suspect]
     Active Substance: PREGABALIN
     Indication: PARALYSIS
     Dosage: 75 MG, 4X/DAY
     Route: 048
  2. LYRICA [Suspect]
     Active Substance: PREGABALIN
     Indication: PAIN
  3. CLONAZEPAM. [Concomitant]
     Active Substance: CLONAZEPAM
     Indication: CLONUS
     Dosage: 1 MG, 4X/DAY (TAKING FOR A COUPLE OF YEARS BUT NOT AT THAT STRENGTH)
  4. KLONOPIN [Concomitant]
     Active Substance: CLONAZEPAM
     Indication: NEUROPATHY PERIPHERAL
     Dosage: 1 MG, 4X/DAY
     Dates: start: 2015
  5. LYRICA [Suspect]
     Active Substance: PREGABALIN
     Indication: NEURALGIA
     Dosage: 75 MG, THREE TIMES A DAY
     Route: 048
     Dates: start: 2016
  6. LYRICA [Suspect]
     Active Substance: PREGABALIN
     Indication: NEUROPATHY PERIPHERAL
     Dosage: 150 MG, 2X/DAY
     Route: 048
  7. LYRICA [Suspect]
     Active Substance: PREGABALIN
     Indication: PARAESTHESIA
     Dosage: 150 MG, 3X/DAY
     Dates: start: 2015
  8. KLONOPIN [Concomitant]
     Active Substance: CLONAZEPAM
     Indication: INTENTION TREMOR
     Dosage: 0.5 MG, AS NEEDED (THREE OR FOUR TIMES A DAY DEPENDING ON HOW MUCH HE NEEDED IT)
  9. LYRICA [Suspect]
     Active Substance: PREGABALIN
     Indication: SPINAL DISORDER
     Dosage: 75 MG, 4X/DAY
     Route: 048
     Dates: start: 2016

REACTIONS (6)
  - Urinary tract infection [Recovered/Resolved]
  - Seizure [Recovered/Resolved]
  - Paraesthesia [Not Recovered/Not Resolved]
  - Myelitis transverse [Not Recovered/Not Resolved]
  - Device related infection [Recovered/Resolved]
  - Therapeutic product effect variable [Recovered/Resolved]

NARRATIVE: CASE EVENT DATE: 20170131
